FAERS Safety Report 7647171-1 (Version None)
Quarter: 2011Q3

REPORT INFORMATION
  Report Type: 
  Country: None (occurrence: None)
  Receive Date: 20110801
  Receipt Date: 20110721
  Transmission Date: 20111222
  Serious: Yes (Other)
  Sender: FDA-Public Use
  Company Number: US-ROCHE-749345

PATIENT
  Sex: Male
  Weight: 68 kg

DRUGS (3)
  1. RHINOCORT [Concomitant]
     Indication: NASAL CONGESTION
  2. ACCUTANE [Suspect]
     Indication: ACNE
     Route: 065
     Dates: start: 20010101
  3. ACCUTANE [Suspect]
     Route: 065
     Dates: start: 20040101, end: 20050101

REACTIONS (4)
  - INFLAMMATORY BOWEL DISEASE [None]
  - INTESTINAL HAEMORRHAGE [None]
  - COLITIS ULCERATIVE [None]
  - GASTROINTESTINAL INJURY [None]
